FAERS Safety Report 18657928 (Version 1)
Quarter: 2020Q4

REPORT INFORMATION
  Report Type: Spontaneous
  Country: IT (occurrence: IT)
  Receive Date: 20201223
  Receipt Date: 20201223
  Transmission Date: 20210114
  Serious: Yes (Life-Threatening, Hospitalization, Other)
  Sender: FDA-Public Use
  Company Number: IT-MYLANLABS-2020M1104062

PATIENT
  Age: 50 Year
  Sex: Female

DRUGS (6)
  1. CAPECITABINE. [Suspect]
     Active Substance: CAPECITABINE
     Indication: CHEMOTHERAPY
     Dosage: 2500 MG/M2, DAYS 1?14, EVERY THREE WEEKS
     Route: 048
     Dates: start: 201710
  2. LETROZOLE. [Suspect]
     Active Substance: LETROZOLE
     Indication: HORMONE THERAPY
     Dosage: 2.5 MG, QD (1/DAY)
     Route: 065
  3. CALCIUM LEVOFOLINATE [Suspect]
     Active Substance: LEVOLEUCOVORIN CALCIUM
     Indication: CHEMOTHERAPY
     Dosage: 100 MG/M2 AS A 3-MIN IV INFUSION ON DAYS 1?3
     Route: 042
     Dates: start: 201507
  4. FLUOROURACIL. [Suspect]
     Active Substance: FLUOROURACIL
     Indication: CHEMOTHERAPY
     Dosage: 350 MG/M2 AS A 3-MIN IV INFUSION ON DAYS 1?3
     Route: 042
     Dates: start: 201507
  5. DENOSUMAB [Suspect]
     Active Substance: DENOSUMAB
     Indication: CHEMOTHERAPY
     Dosage: 120 MG AS A 2-MIN IV INFUSION EVERY 28 DAYS
     Route: 042
     Dates: start: 201507
  6. VINORELBINE [Suspect]
     Active Substance: VINORELBINE TARTRATE
     Indication: CHEMOTHERAPY
     Dosage: 25 MG/M2 AS A 6-MIN IV INFUSION ON DAYS 1 AND 3
     Route: 042
     Dates: start: 201507

REACTIONS (16)
  - Pyrexia [Recovered/Resolved]
  - Confusional state [Unknown]
  - Diarrhoea [Unknown]
  - Psychomotor hyperactivity [Unknown]
  - Mucosal inflammation [Unknown]
  - Thrombocytopenia [Unknown]
  - Neutropenia [Unknown]
  - Asthenia [Unknown]
  - Inappropriate schedule of product administration [Unknown]
  - Hallucination, visual [Unknown]
  - Blood calcium increased [Unknown]
  - Condition aggravated [Unknown]
  - Vomiting [Unknown]
  - Anaemia [Unknown]
  - Blood pressure increased [Recovered/Resolved]
  - Posterior reversible encephalopathy syndrome [Recovered/Resolved]
